FAERS Safety Report 5611089-6 (Version None)
Quarter: 2008Q1

REPORT INFORMATION
  Report Type: 
  Country: None (occurrence: None)
  Receive Date: 20080129
  Receipt Date: 20080123
  Transmission Date: 20080703
  Serious: Yes (Life-Threatening, Hospitalization)
  Sender: FDA-Public Use
  Company Number: SP01754

PATIENT
  Age: 53 Year
  Sex: Male

DRUGS (1)
  1. OSMOPREP [Suspect]
     Indication: COLONOSCOPY
     Dosage: 4 TABLETS, ORAL
     Route: 048
     Dates: start: 20070812, end: 20070812

REACTIONS (4)
  - ANAPHYLACTIC SHOCK [None]
  - PARAESTHESIA [None]
  - PRURITUS [None]
  - WHEEZING [None]
